FAERS Safety Report 23155915 (Version 2)
Quarter: 2023Q4

REPORT INFORMATION
  Report Type: Spontaneous
  Country: US (occurrence: US)
  Receive Date: 20231107
  Receipt Date: 20231115
  Transmission Date: 20240110
  Serious: Yes (Other)
  Sender: FDA-Public Use
  Company Number: US-009507513-2310USA002932

PATIENT
  Age: 68 Year
  Sex: Male
  Weight: 362 kg

DRUGS (3)
  1. JANUVIA [Suspect]
     Active Substance: SITAGLIPTIN PHOSPHATE
     Indication: Type 2 diabetes mellitus
     Dosage: 50 MILLIGRAM, QD
     Route: 048
     Dates: start: 20230107, end: 20231017
  2. LOSARTAN POTASSIUM [Concomitant]
     Active Substance: LOSARTAN POTASSIUM
     Dosage: 50 MILLIGRAM, QD
     Route: 048
  3. NAPROXEN [Concomitant]
     Active Substance: NAPROXEN
     Dosage: UNK

REACTIONS (13)
  - Colon cancer [Unknown]
  - Nasal congestion [Unknown]
  - Blood pressure abnormal [Unknown]
  - Glycosylated haemoglobin abnormal [Unknown]
  - Oxygen saturation abnormal [Unknown]
  - Physical examination abnormal [Unknown]
  - Cough [Unknown]
  - Feeling abnormal [Not Recovered/Not Resolved]
  - Hyperglycaemia [Unknown]
  - Dizziness [Not Recovered/Not Resolved]
  - Abdominal discomfort [Not Recovered/Not Resolved]
  - Inability to afford medication [Unknown]
  - Product dose omission issue [Not Recovered/Not Resolved]

NARRATIVE: CASE EVENT DATE: 20230101
